FAERS Safety Report 20246562 (Version 2)
Quarter: 2022Q1

REPORT INFORMATION
  Report Type: Report from Study
  Country: CO (occurrence: CO)
  Receive Date: 20211229
  Receipt Date: 20220307
  Transmission Date: 20220424
  Serious: Yes (Other)
  Sender: FDA-Public Use
  Company Number: CO-002147023-NVSC2021CO296649

PATIENT

DRUGS (1)
  1. RUXOLITINIB [Suspect]
     Active Substance: RUXOLITINIB
     Indication: Polycythaemia vera
     Dosage: UNK
     Route: 048

REACTIONS (7)
  - Discouragement [Unknown]
  - Product dispensing error [Unknown]
  - Oral mucosal blistering [Unknown]
  - Abdominal distension [Unknown]
  - Product dose omission issue [Unknown]
  - Splenomegaly [Unknown]
  - Somnolence [Unknown]
